FAERS Safety Report 4594025-3 (Version None)
Quarter: 2005Q1

REPORT INFORMATION
  Report Type: 
  Country: None (occurrence: None)
  Receive Date: 20050218
  Receipt Date: 20050204
  Transmission Date: 20050727
  Serious: Yes (Hospitalization, Other)
  Sender: FDA-Public Use
  Company Number: 191315

PATIENT
  Age: 43 Year
  Sex: Female

DRUGS (3)
  1. AVONEX [Suspect]
     Indication: MULTIPLE SCLEROSIS
     Dosage: 30 UG; QW; IM
     Route: 030
     Dates: start: 19990129
  2. FLECAINE [Concomitant]
  3. ATENOLOL [Concomitant]

REACTIONS (3)
  - MALAISE [None]
  - PALPITATIONS [None]
  - PHAEOCHROMOCYTOMA [None]
